FAERS Safety Report 20736439 (Version 3)
Quarter: 2022Q2

REPORT INFORMATION
  Report Type: Report from Study
  Country: US (occurrence: US)
  Receive Date: 20220421
  Receipt Date: 20220617
  Transmission Date: 20220721
  Serious: Yes (Hospitalization, Other)
  Sender: FDA-Public Use
  Company Number: US-GILEAD-2022-0578699

PATIENT
  Age: 83 Year
  Sex: Male

DRUGS (4)
  1. AMBRISENTAN [Suspect]
     Active Substance: AMBRISENTAN
     Indication: Pulmonary hypertension
     Dosage: 10 MG, QD
     Route: 065
     Dates: start: 20220325
  2. WARFARIN [Concomitant]
     Active Substance: WARFARIN
  3. TADALAFIL [Concomitant]
     Active Substance: TADALAFIL
  4. AMBRISENTAN [Concomitant]
     Active Substance: AMBRISENTAN

REACTIONS (11)
  - Cardiac failure [Unknown]
  - Cardiac operation [Unknown]
  - Pericardial effusion [Unknown]
  - Pyrexia [Unknown]
  - Pyrexia [Unknown]
  - Pneumonia [Unknown]
  - Appendix disorder [Unknown]
  - Oxygen consumption increased [Unknown]
  - Back pain [Not Recovered/Not Resolved]
  - Fall [Unknown]
  - Seasonal allergy [Not Recovered/Not Resolved]

NARRATIVE: CASE EVENT DATE: 20220416
